FAERS Safety Report 6722034-4 (Version None)
Quarter: 2010Q2

REPORT INFORMATION
  Report Type: 
  Country: None (occurrence: None)
  Receive Date: 20100512
  Receipt Date: 20100503
  Transmission Date: 20101027
  Serious: Yes (Hospitalization)
  Sender: FDA-Public Use
  Company Number: ES-ELI_LILLY_AND_COMPANY-ES201005001194

PATIENT
  Sex: Female
  Weight: 101.5 kg

DRUGS (11)
  1. BYETTA [Suspect]
     Indication: TYPE 2 DIABETES MELLITUS
     Dosage: 5 UG, EACH MORNING
     Route: 058
     Dates: start: 20100315
  2. BYETTA [Suspect]
     Dosage: 5 UG, EACH EVENING
     Route: 058
     Dates: start: 20100315
  3. LOSARTAN POTASSIUM [Concomitant]
     Indication: HYPERTENSION
     Dosage: 50 MG, EACH MORNING
     Route: 048
     Dates: start: 20070101
  4. PRANDIN [Concomitant]
     Indication: TYPE 2 DIABETES MELLITUS
     Dosage: 1 MG, EACH MORNING
     Route: 048
     Dates: start: 20090101
  5. PRANDIN [Concomitant]
     Dosage: 1 MG, NOON
     Route: 048
     Dates: start: 20090101
  6. PRANDIN [Concomitant]
     Dosage: 1 MG, EACH EVENING
     Route: 048
     Dates: start: 20090101
  7. LEVOTHROID [Concomitant]
     Indication: HYPOTHYROIDISM
     Dosage: 50 MG, EACH MORNING
     Route: 048
     Dates: start: 20070101
  8. CARDURA [Concomitant]
     Indication: HYPERTENSION
     Dosage: 4 MG, NOON
     Route: 048
     Dates: start: 20050101
  9. CARDURA [Concomitant]
     Dosage: 4 MG, EACH EVENING
     Route: 048
     Dates: start: 20050101
  10. EBASTINE [Concomitant]
     Indication: HYPERSENSITIVITY
     Dosage: 20 MG, EACH EVENING
     Route: 048
     Dates: start: 20000101
  11. SINGULAIR [Concomitant]
     Indication: HYPERSENSITIVITY
     Dosage: 10 MG, EACH EVENING
     Route: 048
     Dates: start: 20100101

REACTIONS (1)
  - RENAL COLIC [None]
